FAERS Safety Report 6328012-1 (Version None)
Quarter: 2009Q3

REPORT INFORMATION
  Report Type: 
  Country: None (occurrence: None)
  Receive Date: 20090825
  Receipt Date: 20080902
  Transmission Date: 20100115
  Serious: No
  Sender: FDA-Public Use
  Company Number: US-ABBOTT-08P-163-0473719-00

PATIENT
  Sex: Female

DRUGS (5)
  1. SYNTHROID [Suspect]
     Indication: DRUG USE FOR UNKNOWN INDICATION
     Route: 048
     Dates: start: 20080501
  2. LITHIUM CARBONATE [Concomitant]
     Indication: BIPOLAR DISORDER
     Route: 048
  3. MOOD STABILIZER [Concomitant]
     Indication: BIPOLAR DISORDER
     Route: 048
  4. ANTIPSYCHOTIC [Concomitant]
     Indication: PSYCHOTIC DISORDER
     Route: 048
  5. ANTI-SEIZURE DRUG [Concomitant]
     Indication: BIPOLAR DISORDER
     Route: 048

REACTIONS (2)
  - AMENORRHOEA [None]
  - HYPOMENORRHOEA [None]
